FAERS Safety Report 9936971 (Version 1)
Quarter: 2014Q1

REPORT INFORMATION
  Report Type: Spontaneous
  Country: US (occurrence: None)
  Receive Date: 20140115
  Receipt Date: 20140115
  Transmission Date: 20141002
  Serious: No
  Sender: FDA-Public Use
  Company Number: 2013US002686

PATIENT
  Age: 36 Year
  Sex: Female
  Weight: 70 kg

DRUGS (13)
  1. ICLUSIG [Suspect]
     Indication: ACUTE LYMPHOCYTIC LEUKAEMIA (IN REMISSION)
     Route: 048
     Dates: start: 20130206, end: 20131115
  2. ICLUSIG [Suspect]
     Indication: CHROMOSOME ANALYSIS ABNORMAL
     Route: 048
     Dates: start: 20130206, end: 20131115
  3. ACYCLOVIR (ACYCLOVIR) [Concomitant]
  4. ATENOLOL (ATENOLOL) [Concomitant]
  5. BECLOMETHASONE (BECLOMETASONE DIPROPIONATE) [Concomitant]
  6. CLONIDINE (CLONIDINE) [Concomitant]
  7. HUMULIN R (INSULIN HUMAN) [Concomitant]
  8. MILK OF MAGNESIA [Concomitant]
  9. ONDANSETRON (ONDANSETRON) [Concomitant]
  10. PREDNISONE (PREDNISONE) [Concomitant]
  11. PROCHLORPERAZINE (PROCHLORPERAZINE) [Concomitant]
  12. TYLENOL (PARACETAMOL) [Concomitant]
  13. ZYRTEC (CETIRIZINE HYDROCHLORIDE) [Concomitant]

REACTIONS (4)
  - Cataract [None]
  - Eyelid oedema [None]
  - Bone pain [None]
  - Arthralgia [None]
